FAERS Safety Report 5376367-7 (Version None)
Quarter: 2007Q3

REPORT INFORMATION
  Report Type: 
  Country: None (occurrence: None)
  Receive Date: 20070702
  Receipt Date: 20070621
  Transmission Date: 20080115
  Serious: Yes (Other)
  Sender: FDA-Public Use
  Company Number: US-PFIZER INC-2007040018

PATIENT
  Sex: Female
  Weight: 55.3 kg

DRUGS (2)
  1. CHANTIX [Suspect]
     Indication: SMOKING CESSATION THERAPY
     Route: 048
     Dates: start: 20060906, end: 20061025
  2. ADDERALL 10 [Concomitant]
     Route: 048

REACTIONS (2)
  - DRY EYE [None]
  - INJURY CORNEAL [None]
